FAERS Safety Report 14482042 (Version 1)
Quarter: 2018Q1

REPORT INFORMATION
  Report Type: Report from Study
  Country: DE (occurrence: DE)
  Receive Date: 20180202
  Receipt Date: 20180202
  Transmission Date: 20180509
  Serious: Yes (Other)
  Sender: FDA-Public Use
  Company Number: DE-IPSEN BIOPHARMACEUTICALS, INC.-2018-01016

PATIENT
  Sex: Female
  Weight: 73 kg

DRUGS (1)
  1. PEGYLATED LIPOSOMAL IRINOTECAN [Suspect]
     Active Substance: IRINOTECAN HYDROCHLORIDE
     Indication: PRODUCT USED FOR UNKNOWN INDICATION
     Dosage: 133 MG
     Route: 050
     Dates: start: 20170110, end: 20170502

REACTIONS (1)
  - Campylobacter gastroenteritis [Not Recovered/Not Resolved]

NARRATIVE: CASE EVENT DATE: 201702
